FAERS Safety Report 5336999-9 (Version None)
Quarter: 2007Q2

REPORT INFORMATION
  Report Type: 
  Country: None (occurrence: None)
  Receive Date: 20070529
  Receipt Date: 20070403
  Transmission Date: 20071010
  Serious: Yes (Hospitalization)
  Sender: FDA-Public Use
  Company Number: PHBS2005TR09728

PATIENT
  Age: 68 Year
  Sex: Female

DRUGS (3)
  1. GLEEVEC [Suspect]
     Indication: CHRONIC MYELOID LEUKAEMIA
     Dosage: 400 MG/D
     Route: 048
     Dates: start: 20050507, end: 20050606
  2. GLEEVEC [Suspect]
     Dosage: 400 MG, QD
     Route: 065
     Dates: start: 20060220
  3. GLEEVEC [Suspect]
     Dosage: 400 MG, QD
     Route: 065
     Dates: start: 20060801

REACTIONS (13)
  - ANAPHYLACTOID REACTION [None]
  - BURNING SENSATION [None]
  - CHEST PAIN [None]
  - ERYTHEMA [None]
  - HYPERSENSITIVITY [None]
  - HYPOTENSION [None]
  - OEDEMA [None]
  - PRURITUS [None]
  - PRURITUS GENERALISED [None]
  - RESPIRATORY DISTRESS [None]
  - SKIN CHAPPED [None]
  - SKIN WARM [None]
  - SWELLING FACE [None]
